FAERS Safety Report 9840887 (Version 1)
Quarter: 2014Q1

REPORT INFORMATION
  Report Type: Spontaneous
  Country: US (occurrence: None)
  Receive Date: 20140123
  Receipt Date: 20140123
  Transmission Date: 20141002
  Serious: Yes (Other)
  Sender: FDA-Public Use
  Company Number: None

PATIENT
  Age: 61 Year
  Sex: Female
  Weight: 57.15 kg

DRUGS (1)
  1. LEVOTHYROXINE [Suspect]
     Indication: HYPOTHYROIDISM
     Route: 048
     Dates: start: 2007, end: 2011

REACTIONS (7)
  - Heart rate increased [None]
  - Nervousness [None]
  - Diarrhoea [None]
  - Flushing [None]
  - Tremor [None]
  - Insomnia [None]
  - Product substitution issue [None]
